FAERS Safety Report 5940233-6 (Version None)
Quarter: 2008Q4

REPORT INFORMATION
  Report Type: 
  Country: None (occurrence: None)
  Receive Date: 20081031
  Receipt Date: 20081031
  Transmission Date: 20090506
  Serious: Yes (Hospitalization)
  Sender: FDA-Public Use
  Company Number: None

PATIENT
  Age: 61 Year
  Sex: Male

DRUGS (1)
  1. LISINOPRIL [Suspect]
     Indication: HYPERTENSION
     Dosage: 20 MG EVERY DAY PO
     Route: 048
     Dates: start: 20080422, end: 20081002

REACTIONS (6)
  - CELLULITIS [None]
  - FATIGUE [None]
  - FEELING ABNORMAL [None]
  - HYPERKALAEMIA [None]
  - MALAISE [None]
  - PYREXIA [None]
